FAERS Safety Report 19892746 (Version 2)
Quarter: 2021Q4

REPORT INFORMATION
  Report Type: Spontaneous
  Country: US (occurrence: US)
  Receive Date: 20210928
  Receipt Date: 20211021
  Transmission Date: 20220303
  Serious: Yes (Other)
  Sender: FDA-Public Use
  Company Number: US-UPSHER-SMITH LABORATORIES, LLC-2021USL00669

PATIENT
  Age: 79 Year
  Sex: Male

DRUGS (9)
  1. AMANTADINE HYDROCHLORIDE [Suspect]
     Active Substance: AMANTADINE HYDROCHLORIDE
     Indication: Parkinson^s disease
     Dosage: 100 MG, 3X/DAY
     Route: 048
  2. UNSPECIFIED CHEMOTHERAPEUTIC INFUSIONS [Concomitant]
     Dosage: UNK
  3. MIDODRINE [Concomitant]
     Active Substance: MIDODRINE
  4. CARBIDOPA\LEVODOPA [Concomitant]
     Active Substance: CARBIDOPA\LEVODOPA
  5. FLORINEF ACETATE [Concomitant]
     Active Substance: FLUDROCORTISONE ACETATE
  6. MODAFINIL [Concomitant]
     Active Substance: MODAFINIL
  7. PREDNISONE [Concomitant]
     Active Substance: PREDNISONE
  8. KLOR-CON [Concomitant]
     Active Substance: POTASSIUM CHLORIDE
  9. AMLODIPINE [Concomitant]
     Active Substance: AMLODIPINE BESYLATE

REACTIONS (2)
  - Hypernatraemia [Recovered/Resolved]
  - Fatigue [Not Recovered/Not Resolved]

NARRATIVE: CASE EVENT DATE: 20210908
